FAERS Safety Report 17656355 (Version 4)
Quarter: 2021Q1

REPORT INFORMATION
  Report Type: Report from Study
  Country: US (occurrence: US)
  Receive Date: 20200410
  Receipt Date: 20210127
  Transmission Date: 20210419
  Serious: Yes (Hospitalization, Other)
  Sender: FDA-Public Use
  Company Number: NVSC2020US097259

PATIENT
  Age: 64 Year
  Sex: Male

DRUGS (1)
  1. ENTRESTO [Suspect]
     Active Substance: SACUBITRIL\VALSARTAN
     Indication: CARDIAC FAILURE
     Dosage: UNK
     Route: 065
     Dates: start: 20200203, end: 20200706

REACTIONS (5)
  - Heart rate increased [Unknown]
  - Cough [Recovered/Resolved]
  - International normalised ratio fluctuation [Unknown]
  - Atrial fibrillation [Recovered/Resolved]
  - Carotid artery disease [Unknown]

NARRATIVE: CASE EVENT DATE: 20200404
